FAERS Safety Report 9238724 (Version 1)
Quarter: 2013Q2

REPORT INFORMATION
  Report Type: Spontaneous
  Country: MA (occurrence: MA)
  Receive Date: 20130418
  Receipt Date: 20130418
  Transmission Date: 20140414
  Serious: Yes (Disabling, Other)
  Sender: FDA-Public Use
  Company Number: MA-ROCHE-1215676

PATIENT
  Age: 74 Year
  Sex: Male

DRUGS (2)
  1. PEGASYS [Suspect]
     Indication: HEPATITIS C
     Route: 065
  2. COPEGUS [Suspect]
     Indication: HEPATITIS C
     Route: 048

REACTIONS (5)
  - Confusional state [Recovering/Resolving]
  - Dry skin [Recovering/Resolving]
  - Amnesia [Recovering/Resolving]
  - Lung disorder [Unknown]
  - Goitre [Not Recovered/Not Resolved]
